FAERS Safety Report 5694744-1 (Version None)
Quarter: 2008Q2

REPORT INFORMATION
  Report Type: 
  Country: None (occurrence: None)
  Receive Date: 20080403
  Receipt Date: 20080403
  Transmission Date: 20081010
  Serious: Yes (Hospitalization)
  Sender: FDA-Public Use
  Company Number: None

PATIENT
  Age: 90 Year
  Sex: Female
  Weight: 40.8 kg

DRUGS (2)
  1. NAPROSYN [Suspect]
     Indication: CARDIAC DISORDER
     Dosage: 500MG DAILY PO
     Route: 048
     Dates: start: 20080101, end: 20080401
  2. ASPIRIN [Suspect]
     Indication: ARTHRITIS
     Dosage: 81MG DAILY PO
     Route: 048
     Dates: start: 20080101, end: 20080401

REACTIONS (1)
  - GASTRIC ULCER [None]
